FAERS Safety Report 16520073 (Version 3)
Quarter: 2019Q3

REPORT INFORMATION
  Report Type: Report from Study
  Country: DE (occurrence: DE)
  Receive Date: 20190702
  Receipt Date: 20190820
  Transmission Date: 20191004
  Serious: Yes (Other)
  Sender: FDA-Public Use
  Company Number: PHHY2019DE150388

PATIENT
  Sex: Male
  Weight: 105 kg

DRUGS (16)
  1. COSENTYX [Suspect]
     Active Substance: SECUKINUMAB
     Dosage: 300 MG, PER APPLICATION (PREFIILED PEN)
     Route: 065
     Dates: start: 20180914
  2. COSENTYX [Suspect]
     Active Substance: SECUKINUMAB
     Dosage: 300 MG, PER APPLICATION (PREFIILED PEN)
     Route: 065
     Dates: start: 20190103
  3. COSENTYX [Suspect]
     Active Substance: SECUKINUMAB
     Dosage: 300 MG, PER APPLICATION (PREFIILED PEN)
     Route: 065
     Dates: start: 20190503
  4. COSENTYX [Suspect]
     Active Substance: SECUKINUMAB
     Dosage: 300 MG, PER APPLICATION (PREFIILED PEN)
     Route: 065
     Dates: start: 20180907
  5. DEKRISTOL [Concomitant]
     Active Substance: CHOLECALCIFEROL
     Indication: PRODUCT USED FOR UNKNOWN INDICATION
     Dosage: 2000 IU, QW
     Route: 048
     Dates: start: 20180530
  6. PANTOPRAZOLE [Concomitant]
     Active Substance: PANTOPRAZOLE
     Indication: PRODUCT USED FOR UNKNOWN INDICATION
     Dosage: 40 MG, QD
     Route: 048
     Dates: start: 20181221
  7. ULTIBRO BREEZHALER [Concomitant]
     Active Substance: GLYCOPYRRONIUM\INDACATEROL
     Indication: PRODUCT USED FOR UNKNOWN INDICATION
     Dosage: UNK
     Route: 055
     Dates: start: 20181221
  8. COSENTYX [Suspect]
     Active Substance: SECUKINUMAB
     Dosage: 300 MG, PER APPLICATION (PREFIILED PEN)
     Route: 065
     Dates: start: 20181227
  9. COSENTYX [Suspect]
     Active Substance: SECUKINUMAB
     Dosage: 300 MG, PER APPLICATION (PREFIILED PEN)
     Route: 065
     Dates: start: 20190203
  10. PREDNISONE. [Concomitant]
     Active Substance: PREDNISONE
     Indication: PSORIATIC ARTHROPATHY
     Dosage: 5 MG, QD
     Route: 048
     Dates: start: 20180621
  11. COSENTYX [Suspect]
     Active Substance: SECUKINUMAB
     Dosage: 300 MG, PER APPLICATION (PREFIILED PEN)
     Route: 065
     Dates: start: 20190403
  12. COSENTYX [Suspect]
     Active Substance: SECUKINUMAB
     Dosage: 300 MG, PER APPLICATION (PREFIILED PEN)
     Route: 065
     Dates: start: 20190603
  13. COSENTYX [Suspect]
     Active Substance: SECUKINUMAB
     Dosage: 300 MG, PER APPLICATION (PREFIILED PEN)
     Route: 065
     Dates: start: 20181220
  14. ACETYLSALICYLIC ACID [Concomitant]
     Active Substance: ASPIRIN
     Indication: PRODUCT USED FOR UNKNOWN INDICATION
     Dosage: 100 MG, QD
     Route: 048
     Dates: start: 20181221
  15. COSENTYX [Suspect]
     Active Substance: SECUKINUMAB
     Indication: PSORIATIC ARTHROPATHY
     Dosage: 300 MG, PER APPLICATION (PREFIILED PEN)
     Route: 065
     Dates: start: 20180830
  16. COSENTYX [Suspect]
     Active Substance: SECUKINUMAB
     Dosage: 300 MG, PER APPLICATION (PREFIILED PEN)
     Route: 065
     Dates: start: 20190303

REACTIONS (6)
  - Fluid retention [Unknown]
  - Blood cholesterol increased [Unknown]
  - Blood pressure increased [Unknown]
  - Cardiac failure [Recovered/Resolved]
  - Gout [Unknown]
  - Drug ineffective [Not Recovered/Not Resolved]

NARRATIVE: CASE EVENT DATE: 20180928
